FAERS Safety Report 14710032 (Version 1)
Quarter: 2018Q2

REPORT INFORMATION
  Report Type: Spontaneous
  Country: FR (occurrence: FR)
  Receive Date: 20180403
  Receipt Date: 20180403
  Transmission Date: 20180711
  Serious: Yes (Hospitalization)
  Sender: FDA-Public Use
  Company Number: FR-ELI_LILLY_AND_COMPANY-FR201803013858

PATIENT
  Age: 18 Year
  Sex: Male

DRUGS (4)
  1. NOZINAN                            /00038603/ [Suspect]
     Active Substance: LEVOMEPROMAZINE HYDROCHLORIDE
     Indication: SCHIZOPHRENIA
     Dosage: 3 DF, DAILY
     Route: 048
  2. VALIUM [Suspect]
     Active Substance: DIAZEPAM
     Indication: SEDATION
     Dosage: 30 GTT, DAILY
     Route: 048
  3. VALPROATE DE SODIUM AGUETTANT [Suspect]
     Active Substance: VALPROATE SODIUM
     Indication: SCHIZOPHRENIA
     Dosage: 1500 MG, DAILY
     Route: 048
  4. OLANZAPINE. [Suspect]
     Active Substance: OLANZAPINE
     Indication: SCHIZOPHRENIA
     Dosage: 20 MG, DAILY
     Route: 048

REACTIONS (2)
  - Myocarditis [Not Recovered/Not Resolved]
  - Pyrexia [Not Recovered/Not Resolved]

NARRATIVE: CASE EVENT DATE: 201803
